FAERS Safety Report 12093079 (Version 1)
Quarter: 2016Q1

REPORT INFORMATION
  Report Type: Spontaneous
  Country: US (occurrence: US)
  Receive Date: 20160219
  Receipt Date: 20160219
  Transmission Date: 20160526
  Serious: No
  Sender: FDA-Public Use
  Company Number: US-PFIZER INC-2016098278

PATIENT
  Age: 35 Year
  Sex: Male

DRUGS (18)
  1. LOXAPINE. [Concomitant]
     Active Substance: LOXAPINE
     Dosage: 350 MG, DAILY
  2. KLONOPIN [Concomitant]
     Active Substance: CLONAZEPAM
     Indication: ANXIETY
     Dosage: 1 MG, 3X/DAY
     Dates: start: 201501
  3. KLONOPIN [Concomitant]
     Active Substance: CLONAZEPAM
     Indication: PANIC ATTACK
  4. TRILEPTAL [Concomitant]
     Active Substance: OXCARBAZEPINE
     Indication: AFFECTIVE DISORDER
     Dosage: 300 MG, 2X/DAY (LIQUID FORMULATION)
  5. TRILEPTAL [Concomitant]
     Active Substance: OXCARBAZEPINE
     Indication: AFFECTIVE DISORDER
     Dosage: 150 MG, 2X/DAY
     Dates: start: 200607
  6. CARBAMAZEPINE. [Concomitant]
     Active Substance: CARBAMAZEPINE
     Indication: AFFECTIVE DISORDER
     Dosage: 200 MG, 2X/DAY
     Dates: start: 201307, end: 201308
  7. KLONOPIN [Concomitant]
     Active Substance: CLONAZEPAM
     Indication: SLEEP DISORDER
  8. VALPROATE SEMISODIUM [Concomitant]
     Active Substance: DIVALPROEX SODIUM
     Dosage: 500 MG, 2X/DAY
     Dates: end: 201403
  9. FANAPT [Concomitant]
     Active Substance: ILOPERIDONE
     Dosage: UNK
     Dates: start: 201310, end: 201312
  10. ZIPRASIDONE HCL [Suspect]
     Active Substance: ZIPRASIDONE HYDROCHLORIDE
     Indication: MENTAL DISORDER
     Dosage: 80 MG, AT NIGHT
     Dates: start: 201308, end: 2015
  11. VALPROATE SEMISODIUM [Concomitant]
     Active Substance: DIVALPROEX SODIUM
     Indication: AFFECTIVE DISORDER
     Dosage: 250 MG, 3X/DAY
     Dates: start: 201310
  12. RISPERIDONE. [Concomitant]
     Active Substance: RISPERIDONE
     Indication: MENTAL DISORDER
     Dosage: 3 MG, UNK
     Dates: end: 201401
  13. RISPERIDONE. [Concomitant]
     Active Substance: RISPERIDONE
     Dosage: 4 MG, UNK
     Dates: end: 201501
  14. LOXAPINE. [Concomitant]
     Active Substance: LOXAPINE
     Indication: MENTAL DISORDER
     Dosage: 10 MG, DAILY
     Dates: start: 201209
  15. MIRTAZEPINE [Concomitant]
     Active Substance: MIRTAZAPINE
     Indication: DEPRESSION
     Dosage: 30 MG, 1X/DAY
     Dates: start: 201402
  16. RISPERIDONE. [Concomitant]
     Active Substance: RISPERIDONE
     Dosage: 6 MG, UNK
     Dates: start: 201401
  17. RISPERIDONE. [Concomitant]
     Active Substance: RISPERIDONE
     Dosage: 3 MG, UNK
  18. LATUDA [Concomitant]
     Active Substance: LURASIDONE HYDROCHLORIDE
     Dosage: UNK
     Dates: start: 201312, end: 201401

REACTIONS (2)
  - Somnolence [Recovered/Resolved]
  - Aggression [Recovered/Resolved]

NARRATIVE: CASE EVENT DATE: 201308
